FAERS Safety Report 10176221 (Version 1)
Quarter: 2014Q2

REPORT INFORMATION
  Report Type: Spontaneous
  Country: NL (occurrence: None)
  Receive Date: 20140514
  Receipt Date: 20140514
  Transmission Date: 20141212
  Serious: Yes (Other)
  Sender: FDA-Public Use
  Company Number: FK201401680

PATIENT
  Age: 24 Year
  Sex: Female

DRUGS (3)
  1. ACYCLOVIR SODIUM [Suspect]
     Indication: ENCEPHALITIS
     Route: 042
  2. CEFTRIAXONE (CEFTRIAXONE) [Concomitant]
  3. AMOXICILLIN (AMOXICILLIN) [Concomitant]

REACTIONS (2)
  - Renal failure acute [None]
  - Continuous haemodiafiltration [None]
